FAERS Safety Report 6138421-1 (Version None)
Quarter: 2009Q1

REPORT INFORMATION
  Report Type: 
  Country: None (occurrence: None)
  Receive Date: 20090331
  Receipt Date: 20090323
  Transmission Date: 20090719
  Serious: Yes (Hospitalization, Other)
  Sender: FDA-Public Use
  Company Number: US-ELI_LILLY_AND_COMPANY-US200903005885

PATIENT
  Sex: Female

DRUGS (5)
  1. HUMULIN 70/30 [Suspect]
     Indication: DIABETES MELLITUS
     Dosage: 52 U, 2/D
  2. HUMALOG [Suspect]
     Indication: TYPE 1 DIABETES MELLITUS
     Dosage: UNK, AS NEEDED
     Dates: start: 20081208
  3. CYMBALTA [Suspect]
     Indication: NEUROPATHY PERIPHERAL
  4. GLIPIZIDE [Concomitant]
     Dosage: UNK, DAILY (1/D)
  5. PREDNISONE [Concomitant]
     Indication: BRONCHITIS CHRONIC

REACTIONS (7)
  - ASTHMA [None]
  - BLINDNESS TRANSIENT [None]
  - BLINDNESS UNILATERAL [None]
  - BLOOD GLUCOSE INCREASED [None]
  - BRONCHITIS CHRONIC [None]
  - CATARACT [None]
  - CHOKING [None]
